FAERS Safety Report 9747703 (Version 1)
Quarter: 2013Q4

REPORT INFORMATION
  Report Type: Spontaneous
  Country: NL (occurrence: None)
  Receive Date: 20131206
  Receipt Date: 20131206
  Transmission Date: 20140711
  Serious: Yes (Other)
  Sender: FDA-Public Use
  Company Number: NL-DEXPHARM-20131119

PATIENT
  Age: 6 Decade
  Sex: Male

DRUGS (7)
  1. OMEPRAZOLE [Suspect]
     Dosage: 20 MG MILLIGRAMS, 1 IN 1 DAYS
  2. GABAPENTIN [Suspect]
     Indication: DIABETIC FOOT
     Dosage: 300 MG MILLIGRAMS, 3 IN 1 DAYS
  3. ATFUZOSIN [Concomitant]
  4. GRAMICIDIN [Concomitant]
  5. NEOMYCIN-SULPHATE [Concomitant]
  6. POLYMYXIN B-SULPHATE EYE DROPS [Concomitant]
  7. PREDNISOLONE 0.37% EYE DROPS [Concomitant]

REACTIONS (5)
  - Coma [None]
  - Drug interaction [None]
  - Hypoglycaemia [None]
  - Tremor [None]
  - Loss of consciousness [None]
